FAERS Safety Report 4508943-5 (Version None)
Quarter: 2004Q4

REPORT INFORMATION
  Report Type: 
  Country: None (occurrence: None)
  Receive Date: 20041123
  Receipt Date: 20041112
  Transmission Date: 20050328
  Serious: Yes (Hospitalization)
  Sender: FDA-Public Use
  Company Number: FR-GLAXOSMITHKLINE-B0356822A

PATIENT
  Age: 68 Year
  Sex: Male

DRUGS (4)
  1. COMBIVIR [Suspect]
     Indication: HIV INFECTION
     Dosage: 1UNIT TWICE PER DAY
     Route: 048
     Dates: start: 20021201, end: 20030223
  2. TRIFLUCAN [Suspect]
     Dosage: 4UNIT PER DAY
     Route: 048
     Dates: start: 20021201
  3. KALETRA [Suspect]
     Indication: HIV INFECTION
     Dosage: 3UNIT PER DAY
     Route: 048
     Dates: start: 20021201, end: 20030223
  4. VIREAD [Suspect]
     Indication: HIV INFECTION
     Dosage: 1UNIT PER DAY
     Route: 048
     Dates: start: 20021201, end: 20030223

REACTIONS (8)
  - ANGINA UNSTABLE [None]
  - CAROTID ARTERY STENOSIS [None]
  - CHEST PAIN [None]
  - EJECTION FRACTION DECREASED [None]
  - HEMIPARESIS [None]
  - MOTOR DYSFUNCTION [None]
  - SYPHILIS TEST POSITIVE [None]
  - TRANSIENT ISCHAEMIC ATTACK [None]
